FAERS Safety Report 14815037 (Version 3)
Quarter: 2018Q2

REPORT INFORMATION
  Report Type: Spontaneous
  Country: JP (occurrence: JP)
  Receive Date: 20180426
  Receipt Date: 20180518
  Transmission Date: 20180711
  Serious: Yes (Life-Threatening, Hospitalization, Other)
  Sender: FDA-Public Use
  Company Number: JP-009507513-1804JPN002590J

PATIENT
  Age: 71 Year
  Sex: Male
  Weight: 68 kg

DRUGS (8)
  1. MAGMITT [Concomitant]
     Active Substance: MAGNESIUM OXIDE
     Indication: CONSTIPATION
     Dosage: UNK
     Route: 048
     Dates: start: 20180315, end: 20180422
  2. ZYLORIC [Concomitant]
     Active Substance: ALLOPURINOL
     Indication: HYPERURICAEMIA
     Dosage: UNK
     Route: 048
  3. FOLIAMIN [Concomitant]
     Active Substance: FOLIC ACID
     Dosage: UNK
     Route: 065
     Dates: start: 20180414, end: 20180421
  4. LOXONIN [Concomitant]
     Active Substance: LOXOPROFEN SODIUM
     Indication: PAIN
     Dosage: UNK
     Route: 065
     Dates: start: 20180309, end: 20180422
  5. SENNOSIDE [Concomitant]
     Active Substance: SENNOSIDES
     Indication: CONSTIPATION
     Dosage: UNK
     Route: 048
     Dates: start: 20180311, end: 20180422
  6. KEYTRUDA [Suspect]
     Active Substance: PEMBROLIZUMAB
     Indication: NON-SMALL CELL LUNG CANCER STAGE IIIA
     Dosage: 200 MG, Q3W
     Route: 041
     Dates: start: 20180421, end: 20180421
  7. MUCOSTA [Concomitant]
     Active Substance: REBAMIPIDE
     Indication: GASTRITIS PROPHYLAXIS
     Dosage: UNK
     Route: 048
     Dates: start: 20180309, end: 20180422
  8. URALYT [Concomitant]
     Active Substance: POTASSIUM CITRATE\TRISODIUM CITRATE DIHYDRATE
     Indication: HYPERURICAEMIA
     Dosage: UNK
     Route: 048

REACTIONS (1)
  - Cerebral infarction [Recovering/Resolving]

NARRATIVE: CASE EVENT DATE: 20180422
